FAERS Safety Report 11100382 (Version 1)
Quarter: 2015Q2

REPORT INFORMATION
  Report Type: Spontaneous
  Country: US (occurrence: None)
  Receive Date: 20150507
  Receipt Date: 20150507
  Transmission Date: 20150821
  Serious: Yes (Other)
  Sender: FDA-Public Use
  Company Number: None

PATIENT
  Age: 44 Year
  Sex: Female
  Weight: 70.76 kg

DRUGS (5)
  1. PROBIOTICS [Concomitant]
     Active Substance: PROBIOTICS NOS
  2. HIBISCUS TEA [Concomitant]
  3. GOOD NEIGHBOR PHARMACY NASAL DECONGESTANT [Suspect]
     Active Substance: PSEUDOEPHEDRINE HYDROCHLORIDE
     Indication: SINUS HEADACHE
     Dates: start: 20150505, end: 20150505
  4. APPLE PECTIN [Concomitant]
  5. GARLIC PILL [Concomitant]

REACTIONS (4)
  - Dyspnoea [None]
  - Middle insomnia [None]
  - Blood pressure increased [None]
  - Nervousness [None]

NARRATIVE: CASE EVENT DATE: 20150505
